FAERS Safety Report 11620995 (Version 2)
Quarter: 2015Q4

REPORT INFORMATION
  Report Type: Report from Study
  Country: US (occurrence: US)
  Receive Date: 20151012
  Receipt Date: 20151124
  Transmission Date: 20160304
  Serious: No
  Sender: FDA-Public Use
  Company Number: US-GLAXOSMITHKLINE-A0977403A

PATIENT
  Age: 56 Year
  Sex: Female
  Weight: 91.71 kg

DRUGS (17)
  1. CORGARD [Concomitant]
     Active Substance: NADOLOL
  2. PRILOSEC [Concomitant]
     Active Substance: OMEPRAZOLE MAGNESIUM
  3. BELIMUMAB [Suspect]
     Active Substance: BELIMUMAB
     Indication: SYSTEMIC LUPUS ERYTHEMATOSUS
  4. DYAZIDE [Concomitant]
     Active Substance: HYDROCHLOROTHIAZIDE\TRIAMTERENE
  5. ATIVAN [Concomitant]
     Active Substance: LORAZEPAM
  6. BUSPAR [Concomitant]
     Active Substance: BUSPIRONE HYDROCHLORIDE
  7. CAPOTEN [Concomitant]
     Active Substance: CAPTOPRIL
  8. BENADRYL [Concomitant]
     Active Substance: DIPHENHYDRAMINE HYDROCHLORIDE
  9. BENLYSTA [Suspect]
     Active Substance: BELIMUMAB
     Indication: SYSTEMIC LUPUS ERYTHEMATOSUS
     Route: 042
     Dates: start: 20120404
  10. LIPITOR [Concomitant]
     Active Substance: ATORVASTATIN CALCIUM
  11. TYLENOL [Concomitant]
     Active Substance: ACETAMINOPHEN
  12. RECLAST [Concomitant]
     Active Substance: ZOLEDRONIC ACID
  13. PREDNISONE. [Concomitant]
     Active Substance: PREDNISONE
  14. PLAQUENIL [Concomitant]
     Active Substance: HYDROXYCHLOROQUINE SULFATE
  15. COUMADIN [Concomitant]
     Active Substance: WARFARIN SODIUM
  16. COUMADIN [Concomitant]
     Active Substance: WARFARIN SODIUM
  17. GLIPIZIDE XL [Concomitant]
     Active Substance: GLIPIZIDE

REACTIONS (8)
  - Photophobia [Recovered/Resolved]
  - Nasal congestion [Recovered/Resolved]
  - Dyspnoea [Recovered/Resolved]
  - Headache [Not Recovered/Not Resolved]
  - Pain [Recovered/Resolved]
  - Peripheral swelling [Recovered/Resolved]
  - Adverse drug reaction [Unknown]
  - Nausea [Recovered/Resolved]

NARRATIVE: CASE EVENT DATE: 20120404
